FAERS Safety Report 24291077 (Version 3)
Quarter: 2024Q4

REPORT INFORMATION
  Report Type: Report from Study
  Country: US (occurrence: US)
  Receive Date: 20240906
  Receipt Date: 20241203
  Transmission Date: 20250115
  Serious: Yes (Other)
  Sender: ALEXION PHARMACEUTICALS
  Company Number: US-AstraZeneca-CH-00697237A

PATIENT
  Age: 75 Year
  Weight: 99.773 kg

DRUGS (8)
  1. ULTOMIRIS [Suspect]
     Active Substance: RAVULIZUMAB-CWVZ
     Dosage: 300 MILLIGRAM, Q8W
  2. ULTOMIRIS [Suspect]
     Active Substance: RAVULIZUMAB-CWVZ
     Dosage: 300 MILLIGRAM, Q8W
  3. ULTOMIRIS [Suspect]
     Active Substance: RAVULIZUMAB-CWVZ
     Dosage: 300 MILLIGRAM, Q8W
  4. ULTOMIRIS [Suspect]
     Active Substance: RAVULIZUMAB-CWVZ
     Dosage: 300 MILLIGRAM, Q8W
  5. PYRIDOSTIGMINE [Suspect]
     Active Substance: PYRIDOSTIGMINE
     Dosage: UNK
     Route: 065
  6. PYRIDOSTIGMINE [Suspect]
     Active Substance: PYRIDOSTIGMINE
     Dosage: UNK
  7. PYRIDOSTIGMINE [Suspect]
     Active Substance: PYRIDOSTIGMINE
     Dosage: UNK
     Route: 065
  8. PYRIDOSTIGMINE [Suspect]
     Active Substance: PYRIDOSTIGMINE
     Dosage: UNK

REACTIONS (7)
  - Diverticulitis [Unknown]
  - Diarrhoea [Not Recovered/Not Resolved]
  - Infection [Unknown]
  - Intestinal mass [Unknown]
  - Dyspnoea [Unknown]
  - Balance disorder [Unknown]
  - General physical health deterioration [Unknown]
